FAERS Safety Report 16775538 (Version 8)
Quarter: 2022Q1

REPORT INFORMATION
  Report Type: Spontaneous
  Country: JP (occurrence: JP)
  Receive Date: 20190905
  Receipt Date: 20220224
  Transmission Date: 20220423
  Serious: Yes (Hospitalization, Other)
  Sender: FDA-Public Use
  Company Number: JP-KYOWAKIRIN-2019AKK013597

PATIENT
  Age: 72 Year
  Sex: Female

DRUGS (27)
  1. PEGFILGRASTIM [Suspect]
     Active Substance: PEGFILGRASTIM
     Indication: Colony stimulating factor therapy
     Dosage: 3.6 MILLIGRAM
     Route: 058
     Dates: start: 20190807, end: 20190807
  2. PEGFILGRASTIM [Suspect]
     Active Substance: PEGFILGRASTIM
     Dosage: 3.6 MILLIGRAM
     Route: 058
     Dates: start: 20190514, end: 20190514
  3. PEGFILGRASTIM [Suspect]
     Active Substance: PEGFILGRASTIM
     Dosage: 3.6 MILLIGRAM
     Route: 058
     Dates: start: 20190528, end: 20190528
  4. PEGFILGRASTIM [Suspect]
     Active Substance: PEGFILGRASTIM
     Dosage: 3.6 MILLIGRAM
     Route: 058
     Dates: start: 20190611, end: 20190611
  5. PEGFILGRASTIM [Suspect]
     Active Substance: PEGFILGRASTIM
     Dosage: 3.6 MILLIGRAM
     Route: 058
     Dates: start: 20190625, end: 20190625
  6. PEGFILGRASTIM [Suspect]
     Active Substance: PEGFILGRASTIM
     Dosage: 3.6 MILLIGRAM
     Route: 058
     Dates: start: 20190709, end: 20190709
  7. FOSAPREPITANT [Concomitant]
     Active Substance: FOSAPREPITANT
     Indication: Product used for unknown indication
     Dosage: 150 MG, 1X/2 WEEKS
     Route: 042
     Dates: start: 20190513, end: 20190627
  8. ALOXI [Concomitant]
     Active Substance: PALONOSETRON HYDROCHLORIDE
     Indication: Product used for unknown indication
     Dosage: 0.75 MG, 1X/2 WEEKS
     Route: 042
     Dates: start: 20190513, end: 20190627
  9. DEXAMETHASONE SODIUM PHOSPHATE [Concomitant]
     Active Substance: DEXAMETHASONE SODIUM PHOSPHATE
     Indication: Vomiting
     Dosage: 6.6 MG, 1X/2 WEEKS (6 TIMES)
     Route: 041
     Dates: start: 20190514, end: 20190806
  10. CYCLOPHOSPHAMIDE [Concomitant]
     Active Substance: CYCLOPHOSPHAMIDE
     Indication: Invasive ductal breast carcinoma
     Dosage: 850 MG, 1X/2 WEEKS
     Route: 041
     Dates: start: 20190513, end: 20190513
  11. CYCLOPHOSPHAMIDE [Concomitant]
     Active Substance: CYCLOPHOSPHAMIDE
     Dosage: 850 MG, 1X/2 WEEKS
     Route: 041
     Dates: start: 20190527, end: 20190527
  12. CYCLOPHOSPHAMIDE [Concomitant]
     Active Substance: CYCLOPHOSPHAMIDE
     Dosage: 850 MG, 1X/2 WEEKS
     Route: 041
     Dates: start: 20190610, end: 20190610
  13. CYCLOPHOSPHAMIDE [Concomitant]
     Active Substance: CYCLOPHOSPHAMIDE
     Dosage: 850 MG, 1X/2 WEEKS
     Route: 041
     Dates: start: 20190624, end: 20190624
  14. ADRIACIN [Concomitant]
     Active Substance: DOXORUBICIN HYDROCHLORIDE
     Indication: Invasive ductal breast carcinoma
     Dosage: 85 MG, 1X/2 WEEKS
     Route: 041
     Dates: start: 20190513, end: 20190513
  15. ADRIACIN [Concomitant]
     Active Substance: DOXORUBICIN HYDROCHLORIDE
     Dosage: 85 MG, 1X/2 WEEKS
     Route: 041
     Dates: start: 20190527, end: 20190527
  16. ADRIACIN [Concomitant]
     Active Substance: DOXORUBICIN HYDROCHLORIDE
     Dosage: 85 MG, 1X/2 WEEKS
     Route: 041
     Dates: start: 20190610, end: 20190610
  17. ADRIACIN [Concomitant]
     Active Substance: DOXORUBICIN HYDROCHLORIDE
     Dosage: 85 MG, 1X/2 WEEKS
     Route: 041
     Dates: start: 20190624, end: 20190624
  18. DOCETAXEL [Concomitant]
     Active Substance: DOCETAXEL
     Indication: Invasive ductal breast carcinoma
     Dosage: 105 MILLIGRAM, Q3WK
     Route: 041
     Dates: start: 20190708, end: 20190708
  19. DOCETAXEL [Concomitant]
     Active Substance: DOCETAXEL
     Dosage: 90 MILLIGRAM, Q3WK
     Route: 041
     Dates: start: 20190806, end: 20190806
  20. LANSOPRAZOLE [Concomitant]
     Active Substance: LANSOPRAZOLE
     Indication: Product used for unknown indication
     Dosage: 15 MG, QD (AFTER SUPPER)
     Route: 048
     Dates: start: 20190513
  21. VEMLIDY [Concomitant]
     Active Substance: TENOFOVIR ALAFENAMIDE FUMARATE
     Indication: Product used for unknown indication
     Dosage: 25 MG, QD (AFTER BREAKFAST)
     Route: 048
     Dates: start: 20190420
  22. LEVOFLOXACIN HEMIHYDRATE [Concomitant]
     Active Substance: LEVOFLOXACIN
     Indication: Product used for unknown indication
     Dosage: 500 MG, QD (AFTER BREAKFAST)
     Route: 048
     Dates: start: 20190814, end: 20190818
  23. ATORVASTATIN CALCIUM TRIHYDRATE [Concomitant]
     Active Substance: ATORVASTATIN CALCIUM TRIHYDRATE
     Indication: Product used for unknown indication
     Dosage: 5 MG, QOD (AFTER BREAKFAST)
     Route: 048
  24. CANDESARTAN CILEXETIL [Concomitant]
     Active Substance: CANDESARTAN CILEXETIL
     Indication: Product used for unknown indication
     Dosage: 4 MG, QD (AFTER BREAKFAST)
     Route: 048
  25. METOCLOPRAMIDE [Concomitant]
     Active Substance: METOCLOPRAMIDE
     Indication: Product used for unknown indication
     Dosage: 5 MILLIGRAM, TID
     Route: 048
  26. MAGNESIUM OXIDE [Concomitant]
     Active Substance: MAGNESIUM OXIDE
     Indication: Product used for unknown indication
     Dosage: 330 MG, TID (AFTER EVERY MEAL, ADJUSTMENT AS NEEDED)
     Route: 048
     Dates: start: 20190513
  27. DECADRON [Concomitant]
     Active Substance: DEXAMETHASONE
     Indication: Product used for unknown indication
     Dosage: 4 MILLIGRAM, BID
     Route: 048

REACTIONS (3)
  - Takayasu^s arteritis [Recovered/Resolved]
  - Aortitis [Recovering/Resolving]
  - Chemotherapy [Unknown]

NARRATIVE: CASE EVENT DATE: 20190819
